FAERS Safety Report 25842038 (Version 1)
Quarter: 2025Q3

REPORT INFORMATION
  Report Type: Other
  Country: US (occurrence: US)
  Receive Date: 20250924
  Receipt Date: 20250924
  Transmission Date: 20251020
  Serious: Yes (Hospitalization)
  Sender: SIGMA TAU
  Company Number: US-LEADIANT GMBH-2024LBI000475

PATIENT
  Sex: Female

DRUGS (2)
  1. MATULANE [Suspect]
     Active Substance: PROCARBAZINE HYDROCHLORIDE
     Indication: Brain neoplasm malignant
     Route: 048
     Dates: start: 20240628
  2. GLEOSTINE [Concomitant]
     Active Substance: LOMUSTINE

REACTIONS (2)
  - Anaemia [Recovering/Resolving]
  - Chest pain [Unknown]
